FAERS Safety Report 6231980-X (Version None)
Quarter: 2009Q2

REPORT INFORMATION
  Report Type: 
  Country: None (occurrence: None)
  Receive Date: 20090616
  Receipt Date: 20090604
  Transmission Date: 20091009
  Serious: Yes (Other)
  Sender: FDA-Public Use
  Company Number: US-PFIZER INC-2009183713

PATIENT
  Sex: Male
  Weight: 94.785 kg

DRUGS (4)
  1. CHANTIX [Suspect]
     Indication: NICOTINE DEPENDENCE
     Dosage: UNK
     Dates: start: 20080301, end: 20080501
  2. KLONOPIN [Suspect]
     Dosage: 1 MG, UNK
     Route: 048
     Dates: start: 20061122
  3. ALCOHOL [Suspect]
     Dosage: UNK
  4. CYMBALTA [Concomitant]
     Dosage: 60 MG, UNK
     Route: 048
     Dates: start: 20080101

REACTIONS (4)
  - DYSARTHRIA [None]
  - GAIT DISTURBANCE [None]
  - IMPAIRED DRIVING ABILITY [None]
  - TREMOR [None]
